FAERS Safety Report 6836391-1 (Version None)
Quarter: 2010Q3

REPORT INFORMATION
  Report Type: 
  Country: None (occurrence: None)
  Receive Date: 20100713
  Receipt Date: 20100630
  Transmission Date: 20110219
  Serious: Yes (Hospitalization)
  Sender: FDA-Public Use
  Company Number: NO-ELI_LILLY_AND_COMPANY-NO201007001067

PATIENT
  Sex: Male

DRUGS (8)
  1. OLANZAPINE [Suspect]
     Indication: SCHIZOPHRENIA, PARANOID TYPE
     Dosage: 10 MG, UNKNOWN
     Route: 065
     Dates: start: 19970606, end: 19970617
  2. OLANZAPINE [Suspect]
     Dosage: 15 MG, DAILY (1/D)
     Route: 048
     Dates: start: 19970618
  3. ATACAND HCT [Concomitant]
     Dosage: 16/12.5 (UNITS UNSPECIFIED), DAILY (1/D)
     Route: 065
  4. PLENDIL [Concomitant]
     Dosage: 10 MG, DAILY (1/D)
     Route: 065
  5. HALDOL [Concomitant]
     Dosage: 1 MG, DAILY (1/D)
  6. INSULIN [Concomitant]
     Dosage: UNK, UNKNOWN
     Route: 065
  7. TRILAFON [Concomitant]
     Dosage: UNK, UNKNOWN
     Route: 065
  8. NOVALUZID [Concomitant]

REACTIONS (4)
  - DELUSION [None]
  - DIABETES MELLITUS [None]
  - HALLUCINATION, AUDITORY [None]
  - PSYCHOTIC DISORDER [None]
